FAERS Safety Report 5159054-X (Version None)
Quarter: 2006Q4

REPORT INFORMATION
  Report Type: 
  Country: None (occurrence: None)
  Receive Date: 20061128
  Receipt Date: 20061121
  Transmission Date: 20070319
  Serious: Yes (Hospitalization)
  Sender: FDA-Public Use
  Company Number: US-ROXANE LABORATORIES, INC-2006-DE-06197GD

PATIENT
  Age: 50 Year
  Sex: Male

DRUGS (7)
  1. PREDNISONE TAB [Suspect]
  2. LEFLUNOMIDE [Suspect]
  3. HYDROCHLOROTHIAZIDE [Concomitant]
  4. IBUPROFEN [Concomitant]
  5. SULFASALAZINE [Concomitant]
  6. OMEPRAZOLE [Concomitant]
  7. FLUTICASONE/SALMETEROL [Concomitant]
     Route: 055

REACTIONS (1)
  - BORDETELLA INFECTION [None]
